FAERS Safety Report 5266773-3 (Version None)
Quarter: 2007Q1

REPORT INFORMATION
  Report Type: 
  Country: None (occurrence: None)
  Receive Date: 20070312
  Receipt Date: 20070227
  Transmission Date: 20070707
  Serious: Yes (Other)
  Sender: FDA-Public Use
  Company Number: 2007SP003836

PATIENT
  Age: 47 Year
  Sex: Female
  Weight: 72.5755 kg

DRUGS (2)
  1. PEG-INTRON [Suspect]
     Indication: HEPATITIS C
     Dosage: SC
     Route: 058
     Dates: start: 20061116
  2. RIBAVIRIN [Suspect]
     Indication: HEPATITIS C
     Dosage: PO
     Route: 048
     Dates: start: 20061116

REACTIONS (12)
  - AGEUSIA [None]
  - BLOOD POTASSIUM DECREASED [None]
  - CHROMATURIA [None]
  - CYSTITIS [None]
  - DEHYDRATION [None]
  - DRY MOUTH [None]
  - GLOSSODYNIA [None]
  - INFLUENZA LIKE ILLNESS [None]
  - INJECTION SITE RASH [None]
  - MENORRHAGIA [None]
  - TONGUE DISORDER [None]
  - WEIGHT DECREASED [None]
